FAERS Safety Report 5732907-7 (Version None)
Quarter: 2008Q2

REPORT INFORMATION
  Report Type: 
  Country: None (occurrence: None)
  Receive Date: 20080509
  Receipt Date: 20080228
  Transmission Date: 20081010
  Serious: No
  Sender: FDA-Public Use
  Company Number: A0712459A

PATIENT
  Age: 42 Year
  Sex: Male

DRUGS (15)
  1. COREG CR [Suspect]
     Dosage: 80MG PER DAY
     Route: 048
     Dates: start: 20070501
  2. LISINOPRIL [Concomitant]
  3. PLAVIX [Concomitant]
  4. LIPITOR [Concomitant]
  5. ZETIA [Concomitant]
  6. LEXAPRO [Concomitant]
  7. ASPIRIN [Concomitant]
  8. VITAMIN CAP [Concomitant]
  9. POTASSIUM CHLORIDE [Concomitant]
  10. VITAMIN A [Concomitant]
  11. VITAMIN D [Concomitant]
  12. UNKNOWN MEDICATION [Concomitant]
  13. HERB MEDICATION [Concomitant]
     Indication: SUPPLEMENTATION THERAPY
  14. UNKNOWN MEDICATION [Concomitant]
  15. ASCORBIC ACID [Concomitant]

REACTIONS (5)
  - DIZZINESS [None]
  - HYPERHIDROSIS [None]
  - HYPOAESTHESIA [None]
  - PAIN IN EXTREMITY [None]
  - PERIPHERAL COLDNESS [None]
